FAERS Safety Report 4596214-0 (Version None)
Quarter: 2005Q1

REPORT INFORMATION
  Report Type: 
  Country: None (occurrence: None)
  Receive Date: 20050225
  Receipt Date: 20050215
  Transmission Date: 20050727
  Serious: Yes (Life-Threatening)
  Sender: FDA-Public Use
  Company Number: 2002GB02677

PATIENT
  Age: 68 Year
  Sex: Male
  Weight: 76.2043 kg

DRUGS (2)
  1. ZESTRIL [Suspect]
     Indication: ESSENTIAL HYPERTENSION
     Dosage: 20 MG DAILY PO
     Route: 048
     Dates: start: 20010914
  2. INDOCID RETARD [Concomitant]

REACTIONS (5)
  - AMNESIA [None]
  - BRAIN DAMAGE [None]
  - CIRCULATORY COLLAPSE [None]
  - DIZZINESS [None]
  - HYPOTENSION [None]
